FAERS Safety Report 23653133 (Version 1)
Quarter: 2024Q1

REPORT INFORMATION
  Report Type: Spontaneous
  Country: CA (occurrence: CA)
  Receive Date: 20240320
  Receipt Date: 20240320
  Transmission Date: 20240409
  Serious: Yes (Other)
  Sender: FDA-Public Use
  Company Number: CA-TEVA-VS-3170499

PATIENT
  Age: 57 Year
  Sex: Female

DRUGS (3)
  1. METHOTREXATE SODIUM [Suspect]
     Active Substance: METHOTREXATE SODIUM
     Indication: Rheumatoid arthritis
     Route: 058
  2. LEFLUNOMIDE [Concomitant]
     Active Substance: LEFLUNOMIDE
     Dosage: DOSAGE FORM: NOT SPECIFIED
     Route: 065
  3. RINVOQ [Concomitant]
     Active Substance: UPADACITINIB
     Dosage: DOSAGE FORM: TABLET (EXTENDED- RELEASE)

REACTIONS (2)
  - Condition aggravated [Not Recovered/Not Resolved]
  - Off label use [Not Recovered/Not Resolved]
